FAERS Safety Report 5190347-6 (Version None)
Quarter: 2006Q4

REPORT INFORMATION
  Report Type: 
  Country: None (occurrence: None)
  Receive Date: 20061222
  Receipt Date: 20060608
  Transmission Date: 20070319
  Serious: No
  Sender: FDA-Public Use
  Company Number: US-AMGEN-US182240

PATIENT
  Age: 59 Year
  Sex: Female

DRUGS (5)
  1. ARANESP [Suspect]
     Indication: RENAL FAILURE CHRONIC
     Route: 058
  2. PROGRAF [Concomitant]
     Route: 065
  3. PREDNISONE TAB [Concomitant]
     Route: 065
  4. CELLCEPT [Concomitant]
     Route: 065
  5. LOPRESSOR [Concomitant]
     Route: 065

REACTIONS (1)
  - THERAPEUTIC RESPONSE DECREASED [None]
